FAERS Safety Report 5390294-0 (Version None)
Quarter: 2007Q3

REPORT INFORMATION
  Report Type: 
  Country: None (occurrence: None)
  Receive Date: 20070718
  Receipt Date: 20070522
  Transmission Date: 20080115
  Serious: Yes (Other)
  Sender: FDA-Public Use
  Company Number: US-PFIZER INC-2007041614

PATIENT
  Sex: Female

DRUGS (7)
  1. DETROL LA [Suspect]
     Indication: HYPERTONIC BLADDER
  2. PROPAFENONE HYDROCHLORIDE [Concomitant]
  3. NORVASC [Concomitant]
  4. NADOLOL [Concomitant]
  5. MAGNESIUM SULFATE [Concomitant]
  6. HYDROCHLOROTHIAZIDE [Concomitant]
  7. OPHTHALMOLOGICALS [Concomitant]
     Indication: CATARACT OPERATION

REACTIONS (2)
  - CATARACT OPERATION [None]
  - VENTRICULAR EXTRASYSTOLES [None]
